FAERS Safety Report 6096727-9 (Version None)
Quarter: 2009Q1

REPORT INFORMATION
  Report Type: 
  Country: None (occurrence: None)
  Receive Date: 20090227
  Receipt Date: 20090217
  Transmission Date: 20090719
  Serious: Yes (Other)
  Sender: FDA-Public Use
  Company Number: MY-PFIZER INC-2009173108

PATIENT

DRUGS (7)
  1. SULPERAZON [Suspect]
     Indication: ACINETOBACTER INFECTION
     Dosage: UNK
     Route: 042
     Dates: start: 20080806
  2. RANITIDINE [Concomitant]
  3. PROPRANOLOL [Concomitant]
  4. ERYTHROMYCIN [Concomitant]
  5. LACTULOSE [Concomitant]
  6. METOCLOPRAMIDE HYDROCHLORIDE [Concomitant]
  7. IMIPENEM AND CILASTATIN SODIUM [Concomitant]

REACTIONS (1)
  - COAGULATION TIME PROLONGED [None]
